FAERS Safety Report 8276078-4 (Version None)
Quarter: 2012Q2

REPORT INFORMATION
  Report Type: 
  Country: None (occurrence: None)
  Receive Date: 20120412
  Receipt Date: 20120402
  Transmission Date: 20120825
  Serious: Yes (Life-Threatening)
  Sender: FDA-Public Use
  Company Number: US-JNJFOC-20101102279

PATIENT
  Sex: Male
  Weight: 78.02 kg

DRUGS (17)
  1. PREDNISONE [Concomitant]
     Indication: CROHN'S DISEASE
  2. ENTOCORT EC [Concomitant]
  3. REMICADE [Suspect]
     Route: 042
     Dates: start: 20080201, end: 20080201
  4. REMICADE [Suspect]
     Route: 042
     Dates: start: 20040102
  5. QUESTRAN [Concomitant]
     Indication: CROHN'S DISEASE
  6. REMICADE [Suspect]
     Route: 042
     Dates: start: 20040213, end: 20061115
  7. REMICADE [Suspect]
     Dosage: 39 DOSES ADMINISTERED IN TREAT
     Route: 042
     Dates: start: 20101025
  8. REMICADE [Suspect]
     Dosage: 5 DOSES PRIOR TO TREAT REGISTRATION
     Route: 042
     Dates: start: 20010809
  9. REMICADE [Suspect]
     Indication: CROHN'S DISEASE
     Route: 042
     Dates: start: 20100719
  10. CIMZIA [Suspect]
     Indication: CROHN'S DISEASE
     Dates: start: 20091204, end: 20100601
  11. REMICADE [Suspect]
     Route: 042
     Dates: start: 20040116
  12. REMICADE [Suspect]
     Dosage: DOSE STRENGTH NOT PROVIDED FOR THIS TIME FRAME
     Route: 042
     Dates: start: 20070215, end: 20070615
  13. REMICADE [Suspect]
     Route: 042
     Dates: start: 20100802
  14. REMICADE [Suspect]
     Route: 042
     Dates: start: 20100830
  15. REMICADE [Suspect]
     Route: 042
     Dates: start: 20020425, end: 20030502
  16. REMICADE [Suspect]
     Dosage: 39 DOSES ADMINISTERED IN TREAT
     Route: 042
     Dates: start: 20110719
  17. AZATHIOPRINE [Suspect]
     Indication: CROHN'S DISEASE

REACTIONS (2)
  - DIFFUSE LARGE B-CELL LYMPHOMA [None]
  - URTICARIA [None]
